FAERS Safety Report 12855298 (Version 1)
Quarter: 2016Q4

REPORT INFORMATION
  Report Type: Report from Study
  Country: None (occurrence: HU)
  Receive Date: 20161017
  Receipt Date: 20161017
  Transmission Date: 20170207
  Serious: Yes (Hospitalization)
  Sender: FDA-Public Use
  Company Number: HU-ABBVIE-16P-076-1752243-00

PATIENT
  Age: 76 Year
  Sex: Male

DRUGS (5)
  1. RILMENIDINE (TENAXUM) [Concomitant]
     Indication: HYPERTENSION
     Dosage: IN THE EVENINGS
     Route: 048
  2. NICERGOLINE (ERGOTOP) [Concomitant]
     Indication: HYPERTENSION
     Route: 048
  3. DUODOPA [Suspect]
     Active Substance: CARBIDOPA\LEVODOPA
     Indication: PARKINSON^S DISEASE
     Dosage: MORNING DOSE 14.0 ML; CONTINUOUS DOSE 2.3 ML/H;EXTRA DOSE 2.5 ML
     Route: 050
     Dates: start: 20131112
  4. BISOPROLOL (BISOCARD) [Concomitant]
     Indication: HYPERTENSION
     Route: 048
  5. FOSINOPRIL, HYDROCHLOROTHIAZIDE (DUOPRIL) [Concomitant]
     Indication: HYPERTENSION
     Dosage: 20/12.5 MG; 1.5 TABLET AT A TIME
     Route: 048

REACTIONS (3)
  - Inguinal hernia [Unknown]
  - Fall [Recovered/Resolved]
  - Femoral neck fracture [Not Recovered/Not Resolved]

NARRATIVE: CASE EVENT DATE: 2015
